FAERS Safety Report 5086852-3 (Version None)
Quarter: 2006Q3

REPORT INFORMATION
  Report Type: 
  Country: None (occurrence: None)
  Receive Date: 20060818
  Receipt Date: 20060615
  Transmission Date: 20061208
  Serious: Yes (Other)
  Sender: FDA-Public Use
  Company Number: 34352

PATIENT

DRUGS (3)
  1. BSS [Suspect]
     Indication: SURGERY
  2. BSS [Suspect]
     Indication: SURGERY
  3. DUOVISC [Concomitant]
     Indication: SURGERY

REACTIONS (3)
  - CATARACT OPERATION COMPLICATION [None]
  - POSTOPERATIVE INFECTION [None]
  - THERAPEUTIC PRODUCT CONTAMINATION [None]
